FAERS Safety Report 4305505-X (Version None)
Quarter: 2004Q1

REPORT INFORMATION
  Report Type: 
  Country: None (occurrence: None)
  Receive Date: 20040226
  Receipt Date: 20031106
  Transmission Date: 20041129
  Serious: No
  Sender: FDA-Public Use
  Company Number: US-BRISTOL-MYERS SQUIBB COMPANY-12429973

PATIENT
  Age: 11 Year
  Sex: Male
  Weight: 45 kg

DRUGS (3)
  1. ABILIFY [Suspect]
     Indication: AFFECTIVE DISORDER
     Route: 048
  2. RITALIN [Concomitant]
  3. SEROQUEL [Concomitant]

REACTIONS (1)
  - MUSCLE RIGIDITY [None]
